FAERS Safety Report 7988464-8 (Version None)
Quarter: 2011Q4

REPORT INFORMATION
  Report Type: 
  Country: None (occurrence: None)
  Receive Date: 20111216
  Receipt Date: 20111214
  Transmission Date: 20120403
  Serious: Yes (Other)
  Sender: FDA-Public Use
  Company Number: JP-PFIZER INC-2011303795

PATIENT
  Sex: Female

DRUGS (2)
  1. VARENICLINE TARTRATE [Suspect]
     Dosage: A STARTER PACK
     Route: 048
  2. VARENICLINE TARTRATE [Suspect]
     Dosage: HALF DOSE
     Route: 048

REACTIONS (4)
  - PANIC ATTACK [None]
  - SUICIDE ATTEMPT [None]
  - BEDRIDDEN [None]
  - DEPRESSION [None]
